FAERS Safety Report 6748794-4 (Version None)
Quarter: 2010Q2

REPORT INFORMATION
  Report Type: 
  Country: None (occurrence: None)
  Receive Date: 20100601
  Receipt Date: 20100520
  Transmission Date: 20101027
  Serious: Yes (Other)
  Sender: FDA-Public Use
  Company Number: PHHY2010JP25543

PATIENT
  Sex: Female

DRUGS (3)
  1. TEGRETOL [Suspect]
     Indication: EPILEPSY
     Dosage: 800 MG,UNK
  2. PHENOBARBITAL TAB [Concomitant]
     Indication: EPILEPSY
  3. RIVOTRIL [Concomitant]
     Indication: EPILEPSY
     Dosage: UNK

REACTIONS (8)
  - BREATH ODOUR [None]
  - DENTAL CARIES [None]
  - DENTAL PLAQUE [None]
  - GINGIVAL BLEEDING [None]
  - GINGIVAL HYPERPLASIA [None]
  - GINGIVAL SWELLING [None]
  - PERIODONTITIS [None]
  - TOOTH DEPOSIT [None]
